FAERS Safety Report 5631689-7 (Version None)
Quarter: 2008Q1

REPORT INFORMATION
  Report Type: 
  Country: None (occurrence: None)
  Receive Date: 20080220
  Receipt Date: 20080211
  Transmission Date: 20080703
  Serious: Yes (Other)
  Sender: FDA-Public Use
  Company Number: US-JNJFOC-20080203151

PATIENT
  Age: 65 Year
  Sex: Female
  Weight: 58.06 kg

DRUGS (2)
  1. SIMPLY SLEEP NIGHTTIME [Suspect]
     Indication: INSOMNIA
     Dosage: 37.5 MG TO 50 MG ONCE, IN THE EVENING BEFORE BEDTIME
  2. TOPROL [Concomitant]
     Indication: ARRHYTHMIA
     Dosage: ONE TABLET A DAY

REACTIONS (1)
  - DEPRESSION [None]
